FAERS Safety Report 6892643-0 (Version None)
Quarter: 2010Q3

REPORT INFORMATION
  Report Type: 
  Country: None (occurrence: None)
  Receive Date: 20100731
  Receipt Date: 20080808
  Transmission Date: 20110219
  Serious: Yes (Other)
  Sender: FDA-Public Use
  Company Number: US-PFIZER INC-2006044832

PATIENT
  Sex: Male
  Weight: 94 kg

DRUGS (7)
  1. NEURONTIN [Suspect]
     Indication: BIPOLAR DISORDER
     Route: 048
  2. NEURONTIN [Suspect]
     Indication: CONVULSION
  3. KLONOPIN [Suspect]
  4. SEROQUEL [Suspect]
  5. SYNTHROID [Concomitant]
  6. ATIVAN [Concomitant]
  7. WELLBUTRIN [Concomitant]

REACTIONS (2)
  - DRUG INEFFECTIVE [None]
  - SUICIDE ATTEMPT [None]
